FAERS Safety Report 20887086 (Version 1)
Quarter: 2022Q2

REPORT INFORMATION
  Report Type: Spontaneous
  Country: US (occurrence: US)
  Receive Date: 20220528
  Receipt Date: 20220528
  Transmission Date: 20220720
  Serious: Yes (Other)
  Sender: FDA-Public Use
  Company Number: US-BRISTOL-MYERS SQUIBB COMPANY-2022-044226

PATIENT
  Age: 82 Year
  Sex: Male

DRUGS (1)
  1. OPDIVO [Suspect]
     Active Substance: NIVOLUMAB
     Indication: Renal cell carcinoma
     Dosage: OUGH OCCURS WHEN ^I LIE DOWN^ AND ^ALL NIGHT^
     Route: 065
     Dates: start: 20220425

REACTIONS (5)
  - Rash [Unknown]
  - Fatigue [Unknown]
  - Incisional hernia [Unknown]
  - Pulmonary oedema [Unknown]
  - Cough [Unknown]

NARRATIVE: CASE EVENT DATE: 20220509
